FAERS Safety Report 22080200 (Version 2)
Quarter: 2023Q1

REPORT INFORMATION
  Report Type: Spontaneous
  Country: SE (occurrence: SE)
  Receive Date: 20230309
  Receipt Date: 20230327
  Transmission Date: 20230418
  Serious: Yes (Hospitalization, Other)
  Sender: FDA-Public Use
  Company Number: SE-AMGEN-SWESP2023026923

PATIENT
  Age: 27 Year
  Sex: Male

DRUGS (3)
  1. ADALIMUMAB [Suspect]
     Active Substance: ADALIMUMAB
     Indication: Crohn^s disease
     Dosage: UNK
     Route: 065
  2. USTEKINUMAB [Suspect]
     Active Substance: USTEKINUMAB
     Indication: Crohn^s disease
     Dosage: UNK
     Route: 065
  3. INFLIXIMAB [Suspect]
     Active Substance: INFLIXIMAB
     Indication: Crohn^s disease
     Dosage: UNK
     Route: 065

REACTIONS (19)
  - Bronchiectasis [Unknown]
  - Malnutrition [Unknown]
  - Gastrointestinal disorder [Unknown]
  - Pseudomonas infection [Unknown]
  - Salmonellosis [Unknown]
  - Clostridium difficile colitis [Unknown]
  - General physical health deterioration [Unknown]
  - Platelet count increased [Unknown]
  - C-reactive protein increased [Unknown]
  - Gene mutation [Unknown]
  - Bronchitis chronic [Unknown]
  - White blood cell count increased [Unknown]
  - Mucocutaneous candidiasis [Recovered/Resolved]
  - Neutrophil count increased [Unknown]
  - Campylobacter infection [Unknown]
  - Lymphocyte count decreased [Unknown]
  - Lower respiratory tract infection [Unknown]
  - Varicella zoster virus infection [Unknown]
  - Staphylococcal skin infection [Unknown]
